FAERS Safety Report 6645573-3 (Version None)
Quarter: 2010Q1

REPORT INFORMATION
  Report Type: 
  Country: None (occurrence: None)
  Receive Date: 20100323
  Receipt Date: 20100304
  Transmission Date: 20100710
  Serious: Yes (Hospitalization)
  Sender: FDA-Public Use
  Company Number: 2010BI005496

PATIENT
  Age: 52 Year
  Sex: Female

DRUGS (1)
  1. TYSABRI [Suspect]
     Indication: MULTIPLE SCLEROSIS
     Route: 042
     Dates: start: 20090610, end: 20090812

REACTIONS (4)
  - BRONCHITIS [None]
  - LUNG INFECTION [None]
  - PHARYNGITIS STREPTOCOCCAL [None]
  - PNEUMONIA [None]
